FAERS Safety Report 11913069 (Version 1)
Quarter: 2016Q1

REPORT INFORMATION
  Report Type: Spontaneous
  Country: FR (occurrence: FR)
  Receive Date: 20160113
  Receipt Date: 20160113
  Transmission Date: 20160526
  Serious: Yes (Life-Threatening)
  Sender: FDA-Public Use
  Company Number: PHHY2016FR002974

PATIENT
  Age: 55 Year
  Sex: Female

DRUGS (7)
  1. HUMEX RHUME /00446801/ [Suspect]
     Active Substance: ACETAMINOPHEN\CHLORPHENIRAMINE MALEATE\PSEUDOEPHEDRINE HYDROCHLORIDE
     Indication: NASOPHARYNGITIS
     Dosage: 1 DF, BID EVENING
     Route: 065
     Dates: start: 20150926, end: 20150927
  2. VALSARTAN. [Suspect]
     Active Substance: VALSARTAN
     Dosage: UNK UNK, QD
     Route: 065
     Dates: start: 20150927, end: 20150927
  3. VALSARTAN. [Suspect]
     Active Substance: VALSARTAN
     Indication: HYPERTENSION
     Dosage: UNK UNK, QD
     Route: 065
  4. ADRENALINE [Concomitant]
     Active Substance: EPINEPHRINE
     Indication: PRODUCT USED FOR UNKNOWN INDICATION
     Dosage: 0.1 MG, QD (1 MG/ML)
     Route: 065
     Dates: start: 20150927
  5. ATUXANE [Suspect]
     Active Substance: DEXTROMETHORPHAN HYDROBROMIDE
     Indication: COUGH
     Dosage: 1 DF, QD
     Route: 065
     Dates: start: 20150927
  6. GELOFUSINE//SUCCINYLATED GELATIN [Concomitant]
     Indication: PRODUCT USED FOR UNKNOWN INDICATION
     Dosage: 1 DF, QD (4%)
     Route: 065
     Dates: start: 20150927
  7. HUMEX RHUME                        /00446801/ [Suspect]
     Active Substance: ACETAMINOPHEN\CHLORPHENIRAMINE MALEATE\PSEUDOEPHEDRINE HYDROCHLORIDE
     Indication: NASOPHARYNGITIS
     Dosage: 1 DF, BID EVENING
     Route: 065
     Dates: start: 20150926, end: 20150927

REACTIONS (1)
  - Anaphylactic shock [Recovered/Resolved]

NARRATIVE: CASE EVENT DATE: 20150927
